FAERS Safety Report 7031611-5 (Version None)
Quarter: 2010Q4

REPORT INFORMATION
  Report Type: 
  Country: None (occurrence: None)
  Receive Date: 20101006
  Receipt Date: 20101006
  Transmission Date: 20110411
  Serious: Yes (Other)
  Sender: FDA-Public Use
  Company Number: None

PATIENT
  Age: 78 Year
  Sex: Female

DRUGS (4)
  1. SPIRIVA [Suspect]
     Indication: RENAL FAILURE
     Dosage: YEARS BY MOUTH PRN
     Route: 048
     Dates: start: 20050101, end: 20100801
  2. DILTIAZEM [Concomitant]
  3. TRIAMTERENE [Concomitant]
  4. LISINOPRILM [Concomitant]

REACTIONS (5)
  - BLOOD PRESSURE INCREASED [None]
  - CHRONIC OBSTRUCTIVE PULMONARY DISEASE [None]
  - GASTROOESOPHAGEAL REFLUX DISEASE [None]
  - RENAL FAILURE [None]
  - TYPE 2 DIABETES MELLITUS [None]
